FAERS Safety Report 8764969 (Version 2)
Quarter: 2012Q4

REPORT INFORMATION
  Report Type: 
  Country: JP (occurrence: JP)
  Receive Date: 20120902
  Receipt Date: 20120910
  Transmission Date: 20130627
  Serious: Yes (Death, Life-Threatening, Hospitalization)
  Sender: FDA-Public Use
  Company Number: JP-AMGEN-JPNSP2012054200

PATIENT
  Age: 72 Year
  Sex: Male
  Weight: 62 kg

DRUGS (19)
  1. RANMARK [Suspect]
     Indication: PROSTATE CANCER
     Dosage: 120 mg, UNK
     Route: 058
     Dates: start: 20120807, end: 20120807
  2. RANMARK [Suspect]
     Route: 058
     Dates: start: 20120809, end: 20120809
  3. LEUPLIN [Concomitant]
     Route: 058
     Dates: start: 201208
  4. CASODEX [Concomitant]
     Indication: PROSTATE CANCER
     Route: 048
     Dates: start: 20120804, end: 20120827
  5. ASPARA-CA [Concomitant]
     Indication: PROSTATE CANCER
     Dosage: Unknown
     Route: 048
     Dates: start: 20120804, end: 20120827
  6. ZYLORIC [Concomitant]
     Route: 048
     Dates: start: 20120724
  7. TAMSULOSIN HYDROCHLORIDE [Concomitant]
     Indication: DYSURIA
     Route: 065
     Dates: start: 20120724
  8. MAINTATE [Concomitant]
     Route: 065
     Dates: start: 20120724
  9. ATELEC [Concomitant]
     Route: 048
     Dates: start: 20120724
  10. ACECOL [Concomitant]
     Route: 048
     Dates: start: 20120724
  11. CARDENALIN [Concomitant]
     Route: 048
     Dates: start: 20120724
  12. LANSOPRAZOLE [Concomitant]
     Route: 048
     Dates: start: 20120724
  13. MUCOSTA [Concomitant]
     Route: 048
     Dates: start: 20120724
  14. NEUROTROPIN                        /00398601/ [Concomitant]
     Route: 048
     Dates: start: 20120724
  15. LASIX                              /00032601/ [Concomitant]
     Route: 048
     Dates: start: 20120811
  16. SENNOSIDE                          /00571901/ [Concomitant]
     Route: 048
     Dates: start: 20120811
  17. OXYCONTIN [Concomitant]
     Indication: BONE PAIN
     Route: 048
     Dates: start: 20120731, end: 20120802
  18. OXYCONTIN [Concomitant]
     Route: 048
     Dates: start: 20120802, end: 20120820
  19. OXYCONTIN [Concomitant]
     Route: 048
     Dates: start: 20120821, end: 20120826

REACTIONS (3)
  - Acute pulmonary oedema [Fatal]
  - Blood alkaline phosphatase increased [Not Recovered/Not Resolved]
  - Hypocalcaemia [Fatal]
